FAERS Safety Report 9855671 (Version 1)
Quarter: 2014Q1

REPORT INFORMATION
  Report Type: Spontaneous
  Country: JP (occurrence: JP)
  Receive Date: 20140130
  Receipt Date: 20140130
  Transmission Date: 20141002
  Serious: Yes (Other)
  Sender: FDA-Public Use
  Company Number: PHJP2014JP000478

PATIENT
  Age: 53 Year
  Sex: Male

DRUGS (5)
  1. TEGRETOL [Suspect]
     Indication: BIPOLAR I DISORDER
     Dosage: 1200 MG, DAILY
     Route: 048
     Dates: end: 201310
  2. TEGRETOL [Suspect]
     Dosage: 800 MG, DAILY
     Route: 048
     Dates: start: 201312
  3. TEGRETOL [Suspect]
     Dosage: 600 MG, DAILY
     Route: 048
     Dates: start: 201401
  4. LITHIUM CARBONATE [Concomitant]
     Dosage: 1200 MG, DAILY
     Route: 048
  5. ANTIPSYCHOTICS [Concomitant]
     Indication: BIPOLAR I DISORDER

REACTIONS (15)
  - Diabetes mellitus [Unknown]
  - Glaucoma [Unknown]
  - Intraocular pressure increased [Unknown]
  - Left ventricular hypertrophy [Unknown]
  - Heart rate irregular [Unknown]
  - Coronary artery stenosis [Unknown]
  - Oxygen saturation decreased [Unknown]
  - Blood cholesterol increased [Unknown]
  - Hepatic function abnormal [Unknown]
  - Gamma-glutamyltransferase increased [Unknown]
  - Cardiovascular disorder [Unknown]
  - Eczema [Unknown]
  - Malaise [Unknown]
  - Cardiac disorder [Unknown]
  - Sedation [Unknown]
